FAERS Safety Report 7069119-3 (Version None)
Quarter: 2010Q4

REPORT INFORMATION
  Report Type: 
  Country: None (occurrence: None)
  Receive Date: 20101028
  Receipt Date: 20101022
  Transmission Date: 20110411
  Serious: Yes (Life-Threatening, Disabling, Other)
  Sender: FDA-Public Use
  Company Number: A0865748A

PATIENT
  Age: 66 Year
  Sex: Female
  Weight: 95.9 kg

DRUGS (14)
  1. ADVAIR DISKUS 100/50 [Suspect]
     Indication: ASTHMA
     Dosage: 1PUFF SINGLE DOSE
     Route: 055
     Dates: start: 20100526, end: 20100526
  2. GLYBURIDE [Concomitant]
  3. DUONEB [Concomitant]
  4. PROAIR HFA [Concomitant]
  5. LASIX [Concomitant]
  6. NORVASC [Concomitant]
  7. PRAVASTATIN [Concomitant]
  8. HYOSCYAMINE [Concomitant]
  9. ZOFRAN [Concomitant]
  10. FLEXERIL [Concomitant]
  11. LEVOTHROID [Concomitant]
  12. METFORMIN [Concomitant]
  13. GEODON [Concomitant]
  14. WARFARIN SODIUM [Concomitant]

REACTIONS (5)
  - ANGIOEDEMA [None]
  - FACE OEDEMA [None]
  - HYPERSENSITIVITY [None]
  - LARYNGEAL OEDEMA [None]
  - SWOLLEN TONGUE [None]
